FAERS Safety Report 8621268-1 (Version None)
Quarter: 2012Q3

REPORT INFORMATION
  Report Type: 
  Country: None (occurrence: None)
  Receive Date: 20120824
  Receipt Date: 20120822
  Transmission Date: 20120928
  Serious: Yes (Life-Threatening, Hospitalization)
  Sender: FDA-Public Use
  Company Number: DE-B.I. PHARMACEUTICALS,INC./RIDGEFIELD-2012-DE-01924DE

PATIENT
  Age: 63 Year
  Sex: Male

DRUGS (2)
  1. DICLOFENAC SODIUM [Concomitant]
  2. PRADAXA [Suspect]
     Indication: ATRIAL FIBRILLATION
     Dosage: 300 MG

REACTIONS (3)
  - GASTRIC HAEMORRHAGE [None]
  - RENAL FAILURE [None]
  - MELAENA [None]
